FAERS Safety Report 10605627 (Version 1)
Quarter: 2014Q4

REPORT INFORMATION
  Report Type: Spontaneous
  Country: TW (occurrence: TW)
  Receive Date: 20141125
  Receipt Date: 20141125
  Transmission Date: 20150529
  Serious: Yes (Hospitalization)
  Sender: FDA-Public Use
  Company Number: TW-AMGEN-TWNSP2014091075

PATIENT
  Age: 58 Year
  Sex: Male

DRUGS (1)
  1. ENBREL [Suspect]
     Active Substance: ETANERCEPT
     Indication: PSORIASIS
     Dosage: 25 MG, WEEKLY
     Route: 058
     Dates: start: 201302, end: 201402

REACTIONS (2)
  - Road traffic accident [Recovering/Resolving]
  - Lower limb fracture [Recovering/Resolving]

NARRATIVE: CASE EVENT DATE: 20141115
